FAERS Safety Report 11328998 (Version 1)
Quarter: 2015Q3

REPORT INFORMATION
  Report Type: Report from Study
  Country: CZ (occurrence: CZ)
  Receive Date: 20150802
  Receipt Date: 20150802
  Transmission Date: 20151125
  Serious: Yes (Other)
  Sender: FDA-Public Use
  Company Number: CZ-TEVA-580568ISR

PATIENT
  Age: 23 Year
  Sex: Male

DRUGS (3)
  1. PALIPERIDON [Concomitant]
  2. OLANZAPINE. [Suspect]
     Active Substance: OLANZAPINE
     Dosage: 5 MILLIGRAM DAILY;
     Route: 048
  3. PALIPERIDON [Concomitant]

REACTIONS (2)
  - Drug abuse [Unknown]
  - Sedation [Unknown]
